FAERS Safety Report 9626950 (Version 1)
Quarter: 2013Q4

REPORT INFORMATION
  Report Type: Spontaneous
  Country: IT (occurrence: IT)
  Receive Date: 20131016
  Receipt Date: 20131016
  Transmission Date: 20140711
  Serious: Yes (Hospitalization)
  Sender: FDA-Public Use
  Company Number: IT-TEVA-436368ISR

PATIENT
  Age: 59 Year
  Sex: Female

DRUGS (2)
  1. LORAZEPAM DOROM 2,5MG [Suspect]
     Dosage: 25 MILLIGRAM DAILY;
     Route: 048
     Dates: start: 20130915, end: 20130915
  2. XANAX 0,50MG [Suspect]
     Dosage: 2 MILLIGRAM DAILY;
     Route: 048
     Dates: start: 20130915, end: 20130915

REACTIONS (4)
  - Sopor [Recovered/Resolved]
  - Drug abuse [Recovered/Resolved]
  - Injury [Recovered/Resolved]
  - Fall [Recovered/Resolved]
